FAERS Safety Report 24373341 (Version 1)
Quarter: 2024Q3

REPORT INFORMATION
  Report Type: Spontaneous
  Country: US (occurrence: None)
  Receive Date: 20240926
  Receipt Date: 20240926
  Transmission Date: 20241017
  Serious: Yes (Hospitalization)
  Sender: Public
  Company Number: None

PATIENT
  Age: 45 Year
  Sex: Female
  Weight: 75.8 kg

DRUGS (2)
  1. HIZENTRA [Suspect]
     Active Substance: HUMAN IMMUNOGLOBULIN G
     Indication: Dermatomyositis
     Dosage: OTHER FREQUENCY : WEEKLY;?
     Route: 058
     Dates: start: 20240807, end: 20240819
  2. HIZENTRA [Suspect]
     Active Substance: HUMAN IMMUNOGLOBULIN G
     Indication: Dermatomyositis
     Dosage: OTHER FREQUENCY : WEEKLY;?
     Route: 058
     Dates: start: 20240807, end: 20240819

REACTIONS (9)
  - Infusion related reaction [None]
  - Fatigue [None]
  - Dizziness [None]
  - Heart rate increased [None]
  - Blood pressure increased [None]
  - Dry throat [None]
  - Dyspnoea [None]
  - Therapy cessation [None]
  - Hypersensitivity [None]

NARRATIVE: CASE EVENT DATE: 20240819
